FAERS Safety Report 19461767 (Version 1)
Quarter: 2021Q2

REPORT INFORMATION
  Report Type: Spontaneous
  Country: RU (occurrence: RU)
  Receive Date: 20210625
  Receipt Date: 20210625
  Transmission Date: 20210717
  Serious: Yes (Other)
  Sender: FDA-Public Use
  Company Number: RU-ASTRAZENECA-2021A553785

PATIENT
  Age: 67 Year
  Sex: Female

DRUGS (1)
  1. BRILINTA [Suspect]
     Active Substance: TICAGRELOR
     Indication: MYOCARDIAL INFARCTION
     Route: 048
     Dates: start: 202103, end: 202106

REACTIONS (3)
  - COVID-19 [Unknown]
  - COVID-19 pneumonia [Unknown]
  - Dyspnoea [Recovered/Resolved]
